FAERS Safety Report 22113258 (Version 1)
Quarter: 2023Q1

REPORT INFORMATION
  Report Type: Report from Study
  Country: US (occurrence: US)
  Receive Date: 20230320
  Receipt Date: 20230320
  Transmission Date: 20230418
  Serious: Yes (Hospitalization)
  Sender: FDA-Public Use
  Company Number: US-JNJFOC-20230333598

PATIENT
  Age: 21 Year
  Sex: Female

DRUGS (6)
  1. SPRAVATO [Suspect]
     Active Substance: ESKETAMINE
     Indication: Depression
     Dosage: 84 MG, 1 TOTAL DOSES
     Dates: start: 20230111, end: 20230111
  2. SPRAVATO [Suspect]
     Active Substance: ESKETAMINE
     Dosage: 56 MG, 1 TOTAL DOSES
     Dates: start: 20230116, end: 20230116
  3. SPRAVATO [Suspect]
     Active Substance: ESKETAMINE
     Dosage: 84 MG, 2 TOTAL DOSES
     Dates: start: 20230119, end: 20230126
  4. SPRAVATO [Suspect]
     Active Substance: ESKETAMINE
     Dosage: 56 MG, 1 TOTAL DOSES
     Dates: start: 20230130, end: 20230130
  5. SPRAVATO [Suspect]
     Active Substance: ESKETAMINE
     Dosage: 84MG, 4 TOTAL DOSES
     Dates: start: 20230202, end: 20230307
  6. SPRAVATO [Suspect]
     Active Substance: ESKETAMINE
     Dosage: 84MG, 1 TOTAL DOSES
     Dates: start: 20230310, end: 20230310

REACTIONS (2)
  - Seizure [Unknown]
  - Sedation [Unknown]

NARRATIVE: CASE EVENT DATE: 20230310
